FAERS Safety Report 4964514-8 (Version None)
Quarter: 2006Q2

REPORT INFORMATION
  Report Type: 
  Country: None (occurrence: None)
  Receive Date: 20060406
  Receipt Date: 20060301
  Transmission Date: 20061013
  Serious: Yes (Other)
  Sender: FDA-Public Use
  Company Number: US-GLAXOSMITHKLINE-A0595733A

PATIENT
  Age: 43 Year
  Sex: Female
  Weight: 61.4 kg

DRUGS (3)
  1. LAMICTAL [Suspect]
     Indication: BIPOLAR DISORDER
     Dosage: 25MG THREE TIMES PER DAY
     Route: 048
     Dates: start: 20060216, end: 20060301
  2. EFFEXOR XR [Concomitant]
     Indication: ANXIETY
     Dosage: 75MG PER DAY
  3. TRAZODONE HCL [Concomitant]
     Indication: INSOMNIA

REACTIONS (6)
  - FATIGUE [None]
  - INFECTIOUS MONONUCLEOSIS [None]
  - LYMPHADENOPATHY [None]
  - PYREXIA [None]
  - RASH MACULO-PAPULAR [None]
  - YELLOW SKIN [None]
